FAERS Safety Report 8619009 (Version 2)
Quarter: 2012Q4

REPORT INFORMATION
  Report Type: 
  Country: JP (occurrence: JP)
  Receive Date: 20120618
  Receipt Date: 20120918
  Transmission Date: 20130627
  Serious: Yes (Other)
  Sender: FDA-Public Use
  Company Number: PHHY2012JP051322

PATIENT
  Sex: Male

DRUGS (2)
  1. ZOMETA [Suspect]
     Indication: METASTASES TO BONE
     Dosage: 4 mg, per administration
     Route: 041
     Dates: start: 20100512
  2. TORISEL [Concomitant]
     Dates: start: 20110607

REACTIONS (13)
  - Osteonecrosis of jaw [Unknown]
  - Metastases to bone [Unknown]
  - Periodontal disease [Unknown]
  - Periodontitis [Unknown]
  - Toothache [Unknown]
  - Stomatitis [Unknown]
  - Erythema [Unknown]
  - Swelling [Unknown]
  - Gingival infection [Unknown]
  - Tenderness [Unknown]
  - Pain [Unknown]
  - Exposed bone in jaw [Unknown]
  - Fistula [Unknown]
